FAERS Safety Report 6991484-3 (Version None)
Quarter: 2010Q3

REPORT INFORMATION
  Report Type: 
  Country: None (occurrence: None)
  Receive Date: 20100916
  Receipt Date: 20090827
  Transmission Date: 20110219
  Serious: Yes (Hospitalization)
  Sender: FDA-Public Use
  Company Number: US-WYE-H10751509

PATIENT
  Sex: Male

DRUGS (1)
  1. PRISTIQ [Suspect]
     Route: 048
     Dates: start: 20090820, end: 20090826

REACTIONS (1)
  - CONVULSION [None]
